FAERS Safety Report 23093333 (Version 1)
Quarter: 2023Q4

REPORT INFORMATION
  Report Type: Spontaneous
  Country: US (occurrence: US)
  Receive Date: 20231022
  Receipt Date: 20231022
  Transmission Date: 20240109
  Serious: No
  Sender: FDA-Public Use
  Company Number: US-Teikoku Pharma USA-TPU2023-00457

PATIENT
  Age: 80 Year
  Sex: Male
  Weight: 93.07 kg

DRUGS (1)
  1. LIDOCAINE PATCH [Suspect]
     Active Substance: LIDOCAINE
     Indication: Pain
     Route: 061

REACTIONS (2)
  - Application site pain [Not Recovered/Not Resolved]
  - Application site haemorrhage [Unknown]

NARRATIVE: CASE EVENT DATE: 20230717
